FAERS Safety Report 5749837-7 (Version None)
Quarter: 2008Q2

REPORT INFORMATION
  Report Type: 
  Country: None (occurrence: None)
  Receive Date: 20080522
  Receipt Date: 20080522
  Transmission Date: 20081010
  Serious: Yes (Hospitalization)
  Sender: FDA-Public Use
  Company Number: None

PATIENT
  Sex: Female

DRUGS (6)
  1. RANIBIZUMAB [Suspect]
     Indication: RETINAL VEIN OCCLUSION
     Dosage: 0.5 MG OPHTHALMIC
     Route: 047
     Dates: start: 20051107, end: 20070123
  2. GLIPIZIDE [Concomitant]
  3. DIOVAN [Concomitant]
  4. SIMVASTATIN [Concomitant]
  5. LOTREL [Concomitant]
  6. PHOSLO [Concomitant]

REACTIONS (1)
  - RENAL FAILURE CHRONIC [None]
